FAERS Safety Report 10522445 (Version 1)
Quarter: 2014Q4

REPORT INFORMATION
  Report Type: Spontaneous
  Country: IT (occurrence: IT)
  Receive Date: 20141016
  Receipt Date: 20141016
  Transmission Date: 20150528
  Serious: Yes (Other)
  Sender: FDA-Public Use
  Company Number: IT-ASTRAZENECA-2014SE76440

PATIENT
  Age: 14740 Day
  Sex: Female

DRUGS (4)
  1. SEROQUEL [Suspect]
     Active Substance: QUETIAPINE FUMARATE
     Route: 048
  2. SEROQUEL [Suspect]
     Active Substance: QUETIAPINE FUMARATE
     Dosage: 300 MG FILM COATED TABLET TOTAL 9 DOSES
     Route: 048
     Dates: start: 20140904, end: 20140904
  3. DEPAKIN [Concomitant]
     Active Substance: VALPROATE SODIUM
     Route: 048
  4. LARGACTIL [Concomitant]
     Active Substance: CHLORPROMAZINE
     Route: 048

REACTIONS (3)
  - Slow speech [Recovering/Resolving]
  - Somnolence [Recovering/Resolving]
  - Overdose [Unknown]

NARRATIVE: CASE EVENT DATE: 20140904
